FAERS Safety Report 10027395 (Version 1)
Quarter: 2014Q1

REPORT INFORMATION
  Report Type: Spontaneous
  Country: US (occurrence: US)
  Receive Date: 20140321
  Receipt Date: 20140321
  Transmission Date: 20141002
  Serious: No
  Sender: FDA-Public Use
  Company Number: US-PFIZER INC-2014076741

PATIENT
  Age: 67 Year
  Sex: Male
  Weight: 43.99 kg

DRUGS (1)
  1. VIAGRA [Suspect]
     Indication: ERECTILE DYSFUNCTION
     Dosage: UNK

REACTIONS (3)
  - Intentional drug misuse [Unknown]
  - Penis disorder [Unknown]
  - Erection increased [Unknown]
